FAERS Safety Report 10581561 (Version 3)
Quarter: 2014Q4

REPORT INFORMATION
  Report Type: Spontaneous
  Country: US (occurrence: None)
  Receive Date: 20141110
  Receipt Date: 20141211
  Transmission Date: 20150529
  Serious: Yes (Life-Threatening, Hospitalization)
  Sender: FDA-Public Use
  Company Number: 2014SGN01386

PATIENT
  Age: 63 Year
  Sex: Male
  Weight: 77.7 kg

DRUGS (6)
  1. TRAVATAN Z (TRAVOPROST) [Concomitant]
  2. LEVAQUIN [Concomitant]
     Active Substance: LEVOFLOXACIN
  3. ATIVAN [Concomitant]
     Active Substance: LORAZEPAM
  4. ZOFRAN (ONDANSETRON HYDROCHLORIDE) [Concomitant]
  5. BRENTUXIMAB VEDOTIN (BRENTUXIMAB VEDOTIN) INJECTION [Suspect]
     Active Substance: BRENTUXIMAB VEDOTIN
     Indication: HODGKIN^S DISEASE
     Dosage: 1.8 MG/KG, Q21D, INTRAVENOUS
     Route: 042
     Dates: start: 20141001, end: 20141022
  6. BENDAMUSTINE HYDROCHLORIDE (BENDAMUSTINE HYDROCHLORIDE) [Suspect]
     Active Substance: BENDAMUSTINE HYDROCHLORIDE
     Indication: HODGKIN^S DISEASE
     Dosage: 90 MG/M2, Q21D, INTRAVENOUS
     Route: 042
     Dates: start: 20141001, end: 20141022

REACTIONS (18)
  - Hypotension [None]
  - Flushing [None]
  - Tachypnoea [None]
  - Hypoxia [None]
  - Sepsis [None]
  - Pneumonia [None]
  - Shock [None]
  - Drug hypersensitivity [None]
  - Blood lactic acid decreased [None]
  - Bronchitis [None]
  - Systemic inflammatory response syndrome [None]
  - Dyspnoea [None]
  - Infusion related reaction [None]
  - Tachycardia [None]
  - Diarrhoea [None]
  - Dehydration [None]
  - Oliguria [None]
  - Atelectasis [None]

NARRATIVE: CASE EVENT DATE: 20141023
